FAERS Safety Report 18870559 (Version 3)
Quarter: 2021Q2

REPORT INFORMATION
  Report Type: Spontaneous
  Country: AU (occurrence: AU)
  Receive Date: 20210210
  Receipt Date: 20210611
  Transmission Date: 20210717
  Serious: Yes (Hospitalization, Other)
  Sender: FDA-Public Use
  Company Number: AU-JNJFOC-20210207234

PATIENT
  Age: 32 Year
  Sex: Female

DRUGS (2)
  1. PARACETAMOL [Suspect]
     Active Substance: ACETAMINOPHEN
     Indication: PAIN
     Dosage: 96 X 665 MG MODIFIED?RELEASE PARACETAMOL?ADDITIONAL INFO: OVERDOSE,MISUSE,PARACETAMOL: 665MG;
     Route: 048
  2. PARACETAMOL [Suspect]
     Active Substance: ACETAMINOPHEN
     Indication: DYSMENORRHOEA
     Dosage: REGULAR USE OF FOUR MODIFIED RELEASE PARACETAMOL TABLETS EVERY 3?4 HOURS
     Route: 048

REACTIONS (4)
  - Metabolic acidosis [Recovered/Resolved]
  - Glutathione decreased [Recovered/Resolved]
  - Intentional product misuse [Recovered/Resolved]
  - Intentional overdose [Recovered/Resolved]
